FAERS Safety Report 12612242 (Version 4)
Quarter: 2016Q4

REPORT INFORMATION
  Report Type: Report from Study
  Country: BR (occurrence: BR)
  Receive Date: 20160801
  Receipt Date: 20161220
  Transmission Date: 20170207
  Serious: Yes (Hospitalization, Other)
  Sender: FDA-Public Use
  Company Number: PHHY2016BR103849

PATIENT
  Sex: Female
  Weight: 61 kg

DRUGS (1)
  1. EXJADE [Suspect]
     Active Substance: DEFERASIROX
     Indication: BONE MARROW DISORDER
     Dosage: 25 MG/KG, QD (1500 MG ONCE DAILY)
     Route: 065

REACTIONS (12)
  - Sluggishness [Unknown]
  - Gingival pain [Unknown]
  - Oral discomfort [Unknown]
  - Confusional state [Unknown]
  - Weight decreased [Unknown]
  - Nervousness [Unknown]
  - Serum ferritin increased [Unknown]
  - Oral pain [Unknown]
  - Chest pain [Unknown]
  - Abasia [Unknown]
  - Labyrinthitis [Unknown]
  - Vomiting [Unknown]
